FAERS Safety Report 16290919 (Version 1)
Quarter: 2019Q2

REPORT INFORMATION
  Report Type: Spontaneous
  Country: US (occurrence: US)
  Receive Date: 20190404
  Receipt Date: 20190404
  Transmission Date: 20190711
  Serious: No
  Sender: FDA-Public Use
  Company Number: None

PATIENT
  Age: 59 Year
  Sex: Female

DRUGS (1)
  1. IBRANCE [Suspect]
     Active Substance: PALBOCICLIB
     Route: 048
     Dates: start: 20190207

REACTIONS (6)
  - Insurance issue [None]
  - Hypoaesthesia [None]
  - Chills [None]
  - Nausea [None]
  - Fatigue [None]
  - Product dose omission [None]

NARRATIVE: CASE EVENT DATE: 20190404
